FAERS Safety Report 21173553 (Version 1)
Quarter: 2022Q3

REPORT INFORMATION
  Report Type: Spontaneous
  Country: US (occurrence: US)
  Receive Date: 20220804
  Receipt Date: 20220804
  Transmission Date: 20221026
  Serious: No
  Sender: FDA-Public Use
  Company Number: US-Amarin Pharma, Inc.-2022AMR001153

PATIENT
  Age: 68 Year
  Sex: Female
  Weight: 92.08 kg

DRUGS (6)
  1. VASCEPA [Suspect]
     Active Substance: ICOSAPENT ETHYL
     Indication: Cardiovascular event prophylaxis
     Route: 048
     Dates: start: 2021, end: 2021
  2. VASCEPA [Suspect]
     Active Substance: ICOSAPENT ETHYL
     Indication: Blood triglycerides abnormal
  3. METFORMIN HYDROCHLORIDE [Concomitant]
     Active Substance: METFORMIN HYDROCHLORIDE
     Indication: Product used for unknown indication
  4. GLIPIZIDE ER [Concomitant]
     Active Substance: GLIPIZIDE
     Indication: Product used for unknown indication
  5. VITAMINS [Concomitant]
     Active Substance: VITAMINS
     Indication: Product used for unknown indication
  6. CALCIUM [Concomitant]
     Active Substance: CALCIUM
     Indication: Product used for unknown indication

REACTIONS (1)
  - Diarrhoea [Recovered/Resolved]
